FAERS Safety Report 6348216-1 (Version None)
Quarter: 2009Q3

REPORT INFORMATION
  Report Type: 
  Country: None (occurrence: None)
  Receive Date: 20090910
  Receipt Date: 20090901
  Transmission Date: 20100115
  Serious: Yes (Other)
  Sender: FDA-Public Use
  Company Number: US-AMGEN-QUU362639

PATIENT
  Sex: Female

DRUGS (6)
  1. ENBREL [Suspect]
     Indication: PSORIASIS
  2. HUMIRA [Suspect]
     Indication: PSORIASIS
     Route: 058
     Dates: start: 20081014, end: 20090316
  3. MULTI-VITAMINS [Concomitant]
  4. ESTRADIOL [Concomitant]
     Dates: start: 20090101
  5. IBUPROFEN [Concomitant]
  6. INFLIXIMAB [Concomitant]
     Dates: start: 20090601

REACTIONS (5)
  - HYPOAESTHESIA [None]
  - NEUROPATHY PERIPHERAL [None]
  - PAIN [None]
  - PARAESTHESIA [None]
  - PSORIASIS [None]
